FAERS Safety Report 12250758 (Version 1)
Quarter: 2016Q2

REPORT INFORMATION
  Report Type: Spontaneous
  Country: US (occurrence: US)
  Receive Date: 20160410
  Receipt Date: 20160410
  Transmission Date: 20160815
  Serious: No
  Sender: FDA-Public Use
  Company Number: US-JNJFOC-20160302919

PATIENT
  Age: 4 Decade
  Sex: Female
  Weight: 58.97 kg

DRUGS (4)
  1. IRON [Concomitant]
     Active Substance: IRON
     Indication: MINERAL SUPPLEMENTATION
     Route: 065
  2. ZYRTEC 10MG IR TABLET [Suspect]
     Active Substance: CETIRIZINE HYDROCHLORIDE
     Indication: SINUS DISORDER
     Dosage: 1 TO 2 TABLETS, 1 TO 2 TIMES PER DAY
     Route: 048
  3. ZYRTEC 10MG IR TABLET [Suspect]
     Active Substance: CETIRIZINE HYDROCHLORIDE
     Indication: SINUS DISORDER
     Dosage: 1 TO 2 TABLETS, 1 TO 2 TIMES PER DAY
     Route: 048
  4. ALL OTHER THERAPEUTIC PRODUCTS [Concomitant]
     Active Substance: UNSPECIFIED INGREDIENT
     Indication: VITAMIN SUPPLEMENTATION
     Route: 065

REACTIONS (7)
  - Drug ineffective for unapproved indication [Unknown]
  - Product lot number issue [None]
  - Therapeutic response unexpected [Unknown]
  - Product container issue [Unknown]
  - Product label issue [Unknown]
  - Product closure removal difficult [None]
  - Off label use [Unknown]
